FAERS Safety Report 9651058 (Version 1)
Quarter: 2013Q4

REPORT INFORMATION
  Report Type: Spontaneous
  Country: CA (occurrence: CA)
  Receive Date: 20131029
  Receipt Date: 20131029
  Transmission Date: 20140711
  Serious: Yes (Other)
  Sender: FDA-Public Use
  Company Number: CA-PFIZER INC-2013302841

PATIENT
  Age: 47 Year
  Sex: Female

DRUGS (8)
  1. EFEXOR XR [Suspect]
     Dosage: 225 MG, 1X/DAY
  2. EFEXOR XR [Suspect]
     Dosage: 20 GRAMS, UNK
  3. QUETIAPINE [Concomitant]
     Dosage: 25 MG, 1X/DAY AT BEDTIME
  4. DIAZEPAM [Concomitant]
     Indication: SINUS TACHYCARDIA
     Dosage: 10 MG, 4X/DAY AS NEEDED
  5. DIAZEPAM [Concomitant]
     Indication: AGITATION
     Dosage: UP TO 265 MG, DAILY
     Route: 042
  6. ACTIVATED CHARCOAL [Concomitant]
     Dosage: UNK
  7. CYPROHEPTADINE [Concomitant]
     Dosage: UNK
  8. PEGLYTE [Concomitant]
     Dosage: UNK

REACTIONS (1)
  - Bezoar [Recovering/Resolving]
